FAERS Safety Report 9056578 (Version 5)
Quarter: 2013Q3

REPORT INFORMATION
  Report Type: Report from Study
  Country: GB (occurrence: GB)
  Receive Date: 20130204
  Receipt Date: 20130925
  Transmission Date: 20140515
  Serious: Yes (Other)
  Sender: FDA-Public Use
  Company Number: GB-VERTEX PHARMACEUTICALS INC.-2013-001453

PATIENT
  Age: 57 Year
  Sex: Male

DRUGS (3)
  1. VX-950 (TELAPREVIR) [Suspect]
     Indication: HEPATITIS C
     Dosage: UNK
     Route: 048
     Dates: start: 20121120, end: 2013
  2. RIBAVIRIN [Suspect]
     Indication: HEPATITIS C
     Dosage: DOSAGE FORM: UNSPECIFIED, ^AS PER TREATMENT^
     Route: 048
     Dates: start: 20121120
  3. PEG INTERFERON [Suspect]
     Indication: HEPATITIS C
     Dosage: DOSAGE FORM: UNSPECIFIED, ^AS PER TREATMENT^
     Route: 058
     Dates: start: 20121120

REACTIONS (4)
  - Headache [Unknown]
  - Malaise [Unknown]
  - Hypersomnia [Unknown]
  - Nausea [Not Recovered/Not Resolved]
